FAERS Safety Report 9177736 (Version 2)
Quarter: 2013Q2

REPORT INFORMATION
  Report Type: Spontaneous
  Country: US (occurrence: None)
  Receive Date: 20120531
  Receipt Date: 20130130
  Transmission Date: 20140414
  Serious: Yes (Hospitalization, Other)
  Sender: FDA-Public Use
  Company Number: US201201007404

PATIENT
  Age: 63 Year
  Sex: Male

DRUGS (10)
  1. BYETTA (EXENATIDE) PEN, DISPOSABLE [Suspect]
  2. GLYBURIDE (GLIBENCLAMIDE) [Concomitant]
  3. AVANDIA (ROSIGLITAZONE MALEATE) [Concomitant]
  4. PROTONIX (PANTOPRAZOLE SODIUM SESQUIHYDRATE) [Concomitant]
  5. DILAUDID (HYDROMORPHONE HYDROCHLORIDE) [Concomitant]
  6. ASPIRIN (ACETYLSALICYLIC ACID) [Concomitant]
  7. VYTORIN (EZETIMIBE, SIMVASTATIN) [Concomitant]
  8. TOPROL (METOPROLOL SUCCINATE) [Concomitant]
  9. TRICOR (FENOFIBRATE) [Concomitant]
  10. ALTACE (RAMIPRIL) [Concomitant]

REACTIONS (1)
  - Pancreatitis acute [None]
